FAERS Safety Report 9057883 (Version 1)
Quarter: 2013Q1

REPORT INFORMATION
  Report Type: Spontaneous
  Country: US (occurrence: None)
  Receive Date: 20130117
  Receipt Date: 20130117
  Transmission Date: 20140127
  Serious: Yes (Death)
  Sender: FDA-Public Use
  Company Number: AUR-APL-2013-00109

PATIENT
  Age: 32 Year
  Sex: Male

DRUGS (6)
  1. CITALOPRAM (CITALOPRAM) [Suspect]
  2. MIRTAZAPINE (MIRTAZAPINE) [Suspect]
  3. OXYCODONE (OXYCODONE) [Suspect]
     Route: 048
  4. TRAZODONE [Suspect]
  5. DOXYLAMINE [Suspect]
  6. ACETAMINOPHEN (PARACETAMOL) [Suspect]

REACTIONS (1)
  - Toxicity to various agents [None]
